FAERS Safety Report 5195997-9 (Version None)
Quarter: 2007Q1

REPORT INFORMATION
  Report Type: 
  Country: None (occurrence: None)
  Receive Date: 20070102
  Receipt Date: 20061222
  Transmission Date: 20070707
  Serious: Yes (Death, Hospitalization)
  Sender: FDA-Public Use
  Company Number: JP-AVENTIS-200311522JP

PATIENT
  Age: 68 Year
  Sex: Male
  Weight: 46 kg

DRUGS (18)
  1. ARAVA [Suspect]
     Indication: RHEUMATOID ARTHRITIS
     Route: 048
     Dates: start: 20031018, end: 20031020
  2. ARAVA [Suspect]
     Route: 048
     Dates: start: 20031021, end: 20031110
  3. AZULFIDINE EN-TABS [Concomitant]
     Indication: MUSCULOSKELETAL PAIN
     Route: 048
     Dates: end: 20031017
  4. GASTER D [Concomitant]
     Indication: GASTRITIS
     Route: 048
     Dates: end: 20031023
  5. GASTER D [Concomitant]
     Route: 048
     Dates: start: 20031024
  6. PURSENNID                          /00571901/ [Concomitant]
     Indication: CONSTIPATION
     Route: 048
  7. PREDNISOLONE [Concomitant]
     Indication: MUSCULOSKELETAL PAIN
     Route: 048
  8. ADALAT [Concomitant]
     Indication: HYPERTENSION
     Route: 048
  9. CAPTOPIRIL [Concomitant]
     Indication: HYPERTENSION
     Route: 048
     Dates: end: 20031020
  10. ALDOMET                            /00000101/ [Concomitant]
     Indication: HYPERTENSION
     Route: 048
  11. CARDENALIN [Concomitant]
     Indication: HYPERTENSION
     Route: 048
  12. SALOBEL [Concomitant]
     Indication: GOUT
     Route: 048
  13. MEVALOTIN [Concomitant]
     Indication: HYPERLIPIDAEMIA
     Route: 048
     Dates: end: 20031030
  14. MEVALOTIN [Concomitant]
     Route: 048
     Dates: start: 20031031
  15. LASIX [Concomitant]
     Indication: HYPERTENSION
     Route: 048
  16. CALCIUM LACTATE [Concomitant]
     Indication: OSTEOPOROSIS
     Route: 048
  17. ONEALFA [Concomitant]
     Indication: OSTEOPOROSIS
     Route: 048
  18. LENDORMIN [Concomitant]
     Indication: INSOMNIA
     Route: 048

REACTIONS (2)
  - CEREBRAL INFARCTION [None]
  - PLATELET COUNT DECREASED [None]
